FAERS Safety Report 10287185 (Version 2)
Quarter: 2014Q3

REPORT INFORMATION
  Report Type: Spontaneous
  Country: FR (occurrence: FR)
  Receive Date: 20140709
  Receipt Date: 20140813
  Transmission Date: 20150326
  Serious: Yes (Hospitalization)
  Sender: FDA-Public Use
  Company Number: FR-ELI_LILLY_AND_COMPANY-FR201407001887

PATIENT
  Age: 72 Year
  Sex: Male

DRUGS (20)
  1. ZOPHREN [Concomitant]
     Active Substance: ONDANSETRON
  2. DIAMICRON [Concomitant]
     Active Substance: GLICLAZIDE
  3. DIFFU-K [Concomitant]
     Active Substance: POTASSIUM CHLORIDE
  4. APROVEL [Concomitant]
     Active Substance: IRBESARTAN
  5. ULCAR [Concomitant]
     Active Substance: SUCRALFATE
  6. JANUVIA [Concomitant]
     Active Substance: SITAGLIPTIN PHOSPHATE
  7. TAHOR [Concomitant]
     Active Substance: ATORVASTATIN CALCIUM
  8. SOLU-MEDROL [Concomitant]
     Active Substance: METHYLPREDNISOLONE SODIUM SUCCINATE
  9. TEMERIT [Concomitant]
     Active Substance: NEBIVOLOL
  10. LASILIX [Concomitant]
     Active Substance: FUROSEMIDE
  11. AVODART [Concomitant]
     Active Substance: DUTASTERIDE
  12. INEXIUM [Concomitant]
     Active Substance: ESOMEPRAZOLE
  13. CARBOPLATINE TEVA [Suspect]
     Active Substance: CARBOPLATIN
     Indication: LUNG CARCINOMA CELL TYPE UNSPECIFIED STAGE IV
     Dosage: 618 MG, SINGLE
     Route: 042
     Dates: start: 20140528, end: 20140528
  14. XATRAL [Concomitant]
     Active Substance: ALFUZOSIN
  15. SPECIAFOLDINE [Concomitant]
     Active Substance: FOLIC ACID
  16. ALIMTA [Suspect]
     Active Substance: PEMETREXED DISODIUM
     Indication: LUNG CARCINOMA CELL TYPE UNSPECIFIED STAGE IV
     Dosage: 1000 MG, SINGLE
     Route: 042
     Dates: start: 20140528, end: 20140528
  17. GLUCOPHAGE [Concomitant]
     Active Substance: METFORMIN HYDROCHLORIDE
  18. CORDARONE [Concomitant]
     Active Substance: AMIODARONE HYDROCHLORIDE
  19. INNOHEP [Concomitant]
     Active Substance: TINZAPARIN SODIUM
  20. DOSMIN [Concomitant]

REACTIONS (2)
  - Renal tubular necrosis [Recovered/Resolved with Sequelae]
  - Off label use [Unknown]

NARRATIVE: CASE EVENT DATE: 20140602
